FAERS Safety Report 5235239-9 (Version None)
Quarter: 2007Q1

REPORT INFORMATION
  Report Type: 
  Country: None (occurrence: None)
  Receive Date: 20070207
  Receipt Date: 20070207
  Transmission Date: 20070707
  Serious: Yes (Other)
  Sender: FDA-Public Use
  Company Number: None

PATIENT
  Age: 46 Year
  Sex: Female
  Weight: 61.6892 kg

DRUGS (2)
  1. LEVAQUIN [Suspect]
     Indication: SINUSITIS
     Dosage: 500 MG ONCE DAILY PO
     Route: 048
     Dates: start: 20070201, end: 20070203
  2. MUCINEX [Concomitant]

REACTIONS (10)
  - ANXIETY [None]
  - BURNING SENSATION [None]
  - DRY SKIN [None]
  - ERYTHEMA [None]
  - FLUSHING [None]
  - INSOMNIA [None]
  - PARAESTHESIA [None]
  - PRURITUS [None]
  - SKIN EXFOLIATION [None]
  - SWELLING FACE [None]
